FAERS Safety Report 15378582 (Version 2)
Quarter: 2018Q4

REPORT INFORMATION
  Report Type: Spontaneous
  Country: JP (occurrence: JP)
  Receive Date: 20180913
  Receipt Date: 20181017
  Transmission Date: 20190204
  Serious: Yes (Death)
  Sender: FDA-Public Use
  Company Number: JP-BAYER-2018-169991

PATIENT
  Age: 60 Year
  Sex: Male

DRUGS (7)
  1. OPSUMIT [Concomitant]
     Active Substance: MACITENTAN
  2. BAKTAR [Concomitant]
     Active Substance: SULFAMETHOXAZOLE\TRIMETHOPRIM
  3. UPTRAVI [Concomitant]
     Active Substance: SELEXIPAG
  4. PREDONINE [Concomitant]
     Active Substance: PREDNISOLONE
  5. DIART [Concomitant]
     Active Substance: AZOSEMIDE
  6. TOLVAPTAN [Concomitant]
     Active Substance: TOLVAPTAN
  7. ADEMPAS [Suspect]
     Active Substance: RIOCIGUAT
     Indication: PULMONARY ARTERIAL HYPERTENSION
     Dosage: 0.5 MG, TID
     Route: 048
     Dates: start: 20180815

REACTIONS (1)
  - Idiopathic pulmonary fibrosis [Fatal]
